FAERS Safety Report 17734026 (Version 9)
Quarter: 2022Q2

REPORT INFORMATION
  Report Type: Spontaneous
  Country: US (occurrence: US)
  Receive Date: 20200501
  Receipt Date: 20220502
  Transmission Date: 20220720
  Serious: No
  Sender: FDA-Public Use
  Company Number: US-PFIZER INC-2019051302

PATIENT
  Age: 63 Year
  Sex: Female
  Weight: 96.62 kg

DRUGS (6)
  1. LYRICA [Suspect]
     Active Substance: PREGABALIN
     Indication: Neuropathy peripheral
     Dosage: 75 MG, 2X/DAY
  2. LYRICA [Suspect]
     Active Substance: PREGABALIN
     Indication: Type 2 diabetes mellitus
     Dosage: 150 MG, 2X/DAY (2 CAPS OF 75MG, TWICE A DAY)
  3. LYRICA [Suspect]
     Active Substance: PREGABALIN
     Indication: Neuralgia
     Dosage: UNK
  4. LYRICA [Suspect]
     Active Substance: PREGABALIN
     Indication: Polyneuropathy
     Dosage: 300 MG, 2X/DAY [1 CAPSULE BY MOUTH TWICE A DAY AS DIRECTED BY PHYSICIAN]
     Route: 048
     Dates: start: 2018
  5. LYRICA [Suspect]
     Active Substance: PREGABALIN
     Dosage: 75 MG, 2XDAY[TAKE 1 CAP TWICE A DAY ? 7 DAYS THEN 2 CAPS TWICE A DAY]
     Dates: start: 20190104
  6. LYRICA [Suspect]
     Active Substance: PREGABALIN
     Dosage: 300 MG, 2X/DAY

REACTIONS (1)
  - Pain [Not Recovered/Not Resolved]
